FAERS Safety Report 9679921 (Version 1)
Quarter: 2013Q4

REPORT INFORMATION
  Report Type: Spontaneous
  Country: GB (occurrence: GB)
  Receive Date: 20131110
  Receipt Date: 20131110
  Transmission Date: 20140711
  Serious: Yes (Death, Hospitalization)
  Sender: FDA-Public Use
  Company Number: GB-ROCHE-1299012

PATIENT
  Age: 63 Year
  Sex: Male
  Weight: 120 kg

DRUGS (9)
  1. ORLISTAT [Suspect]
     Indication: OBESITY
     Route: 048
  2. ASPIRIN [Concomitant]
  3. ATORVASTATIN [Concomitant]
  4. FOLIC ACID [Concomitant]
  5. GLICLAZIDE [Concomitant]
  6. LEVOTHYROXINE [Concomitant]
  7. LISINOPRIL [Concomitant]
  8. NAPROXEN [Concomitant]
     Route: 065
  9. OMEPRAZOLE [Concomitant]

REACTIONS (3)
  - Pancreatitis [Fatal]
  - Cardiac arrest [Unknown]
  - Abdominal pain [Unknown]
